FAERS Safety Report 13416702 (Version 1)
Quarter: 2017Q2

REPORT INFORMATION
  Report Type: Spontaneous
  Country: DE (occurrence: DE)
  Receive Date: 20170407
  Receipt Date: 20170407
  Transmission Date: 20170830
  Serious: Yes (Disabling)
  Sender: FDA-Public Use
  Company Number: DE-TEVA-755490GER

PATIENT
  Age: 49 Year
  Sex: Female
  Weight: 56 kg

DRUGS (25)
  1. RAMIPRIL. [Suspect]
     Active Substance: RAMIPRIL
     Indication: HYPERTENSION
     Dates: start: 20161222
  2. PANZYTRAT 25.000 (PANCREATIN) [Concomitant]
     Active Substance: PANCRELIPASE
  3. HUMALOG [Concomitant]
     Active Substance: INSULIN LISPRO
  4. SULTANOL DOSIERAEROSOL [Concomitant]
  5. ULTIBRO BREEZHALER [Concomitant]
     Active Substance: GLYCOPYRRONIUM\INDACATEROL
  6. PROBIO CULT [Concomitant]
     Dosage: 2 DOSAGE FORMS DAILY;
  7. CEFTOLOZAN [Suspect]
     Active Substance: CEFTOLOZANE
     Dates: start: 201612
  8. RAMIPRIL. [Suspect]
     Active Substance: RAMIPRIL
     Dates: start: 201701
  9. ZITHROMAX [Concomitant]
     Active Substance: AZITHROMYCIN DIHYDRATE
     Dosage: 214.2857 MILLIGRAM DAILY;
  10. IDEOS [Concomitant]
     Active Substance: CALCIUM CARBONATE\CHOLECALCIFEROL
  11. AMLODIPIN [Concomitant]
     Active Substance: AMLODIPINE BESYLATE
     Dosage: 10 MILLIGRAM DAILY;
  12. CAYSTON [Concomitant]
     Active Substance: AZTREONAM
     Dosage: 3 DOSAGE FORMS DAILY;
  13. DEKRISTOL 20000 I.E. [Concomitant]
     Dosage: .0333 DOSAGE FORMS DAILY;
  14. URSOFALK [Concomitant]
     Active Substance: URSODIOL
     Dosage: 750 MILLIGRAM DAILY;
  15. COLOBREATHE [Concomitant]
     Active Substance: COLISTIMETHATE SODIUM
     Dosage: 3 DOSAGE FORMS DAILY;
  16. RAMIPRIL. [Suspect]
     Active Substance: RAMIPRIL
     Dates: start: 20161227
  17. VIGANTOLETTEN 1000 [Concomitant]
     Dosage: 2 DOSAGE FORMS DAILY;
  18. ORKAMBI [Concomitant]
     Active Substance: IVACAFTOR\LUMACAFTOR
     Dosage: 4 DOSAGE FORMS DAILY;
  19. PULMOZYME [Concomitant]
     Active Substance: DORNASE ALFA
     Dosage: 1 DOSAGE FORMS DAILY;
  20. CYCLOCAPS [Concomitant]
     Dosage: 2 DOSAGE FORMS DAILY;
  21. VALSARTAN. [Suspect]
     Active Substance: VALSARTAN
     Indication: HYPERTENSION
     Dates: start: 201701, end: 20170113
  22. TOBRAMYCIN. [Suspect]
     Active Substance: TOBRAMYCIN
     Dates: start: 201612
  23. FERRUM HAUSMANN [Concomitant]
     Active Substance: FERROUS FUMARATE
     Dosage: 20 GTT DAILY;
  24. BUDESONID [Concomitant]
     Active Substance: BUDESONIDE
  25. ATROVENT [Concomitant]
     Active Substance: IPRATROPIUM BROMIDE
     Dosage: 12 DOSAGE FORMS DAILY;

REACTIONS (1)
  - Renal failure [Not Recovered/Not Resolved]

NARRATIVE: CASE EVENT DATE: 20170113
